FAERS Safety Report 4382749-2 (Version None)
Quarter: 2004Q2

REPORT INFORMATION
  Report Type: 
  Country: None (occurrence: None)
  Receive Date: 20040622
  Receipt Date: 20040622
  Transmission Date: 20050107
  Serious: Yes (Hospitalization, Other)
  Sender: FDA-Public Use
  Company Number: None

PATIENT
  Age: 76 Year
  Sex: Male
  Weight: 81.1939 kg

DRUGS (1)
  1. CRESTOR [Suspect]
     Indication: BLOOD CHOLESTEROL ABNORMAL
     Dosage: 10 MG ONCE A DAY
     Dates: start: 20040101, end: 20040401

REACTIONS (16)
  - APHASIA [None]
  - ASTHENIA [None]
  - BLOOD PRESSURE DECREASED [None]
  - DEPRESSION [None]
  - FAECAL INCONTINENCE [None]
  - FEELING ABNORMAL [None]
  - FEELING DRUNK [None]
  - GASTRITIS [None]
  - HYPERHIDROSIS [None]
  - INFECTION PARASITIC [None]
  - IRRITABILITY [None]
  - LISTLESS [None]
  - MOBILITY DECREASED [None]
  - MOVEMENT DISORDER [None]
  - PAIN [None]
  - VOMITING [None]
